FAERS Safety Report 9216314 (Version 1)
Quarter: 2013Q2

REPORT INFORMATION
  Report Type: Spontaneous
  Country: AU (occurrence: AU)
  Receive Date: 20130408
  Receipt Date: 20130408
  Transmission Date: 20140414
  Serious: Yes (Other)
  Sender: FDA-Public Use
  Company Number: PHHY2013AU024155

PATIENT
  Age: 72 Year
  Sex: Male
  Weight: 73 kg

DRUGS (9)
  1. ACLASTA [Suspect]
     Indication: OSTEOPOROSIS
     Dosage: 5 MG, UNK
     Route: 042
  2. ACLASTA [Suspect]
     Dosage: 5 MG, UNK
     Route: 042
     Dates: start: 20120305
  3. ACLASTA [Suspect]
     Dosage: 5 MG, UNK
     Route: 042
     Dates: start: 20130307
  4. TRIASYN [Concomitant]
     Indication: HYPERTENSION
     Dosage: 1 DF, DAILY
     Route: 048
     Dates: start: 2001
  5. CRESTOR [Concomitant]
     Indication: MYOCARDIAL ISCHAEMIA
     Dosage: 1 DF (IN THE MORNING)
     Route: 048
     Dates: start: 2001
  6. DBL ASPIRIN [Concomitant]
     Dosage: 1 DF, WITH MEALS
     Route: 048
     Dates: start: 2001
  7. DIAMICRON MR [Concomitant]
     Indication: TYPE 2 DIABETES MELLITUS
     Dosage: 2 DF, IN THE MORNING
     Route: 048
     Dates: start: 2007
  8. IMDUR [Concomitant]
     Dosage: 60 MG,ONE BEFORE BED
     Route: 048
     Dates: start: 2001
  9. PARIET [Concomitant]
     Indication: GASTROOESOPHAGEAL REFLUX DISEASE
     Dosage: 2 DF,ONE BEFORE BED AND ONE BEFORE MEALS
     Route: 048
     Dates: start: 2005

REACTIONS (3)
  - Lower respiratory tract infection [Unknown]
  - Cough [Recovered/Resolved]
  - Influenza [Recovered/Resolved]
